FAERS Safety Report 25588917 (Version 2)
Quarter: 2025Q3

REPORT INFORMATION
  Report Type: Report from Study
  Country: US (occurrence: US)
  Receive Date: 20250722
  Receipt Date: 20250730
  Transmission Date: 20251020
  Serious: No
  Sender: SUNOVION
  Company Number: US-SUMITOMO PHARMA SWITZERLAND GMBH-2025SPA006584

PATIENT

DRUGS (16)
  1. ORGOVYX [Suspect]
     Active Substance: RELUGOLIX
     Indication: Prostate cancer
     Dosage: 120 MG, QD
     Route: 048
     Dates: start: 20250520
  2. AMLODIPINE [Concomitant]
     Active Substance: AMLODIPINE BESYLATE
     Route: 065
  3. ATORVASTATIN [Concomitant]
     Active Substance: ATORVASTATIN
     Route: 065
  4. COLCHICINE [Concomitant]
     Active Substance: COLCHICINE
     Route: 065
  5. FISH OIL [Concomitant]
     Active Substance: FISH OIL
     Route: 065
  6. ESCITALOPRAM [Concomitant]
     Active Substance: ESCITALOPRAM OXALATE
     Route: 065
  7. FAMOTIDINE [Concomitant]
     Active Substance: FAMOTIDINE
     Route: 065
  8. FARXIGA [Concomitant]
     Active Substance: DAPAGLIFLOZIN PROPANEDIOL
     Route: 065
  9. LOSARTAN [Concomitant]
     Active Substance: LOSARTAN
     Route: 065
  10. METAMUCIL [Concomitant]
     Active Substance: PLANTAGO SEED
     Route: 065
  11. METHYLPREDNISOLONE [Concomitant]
     Active Substance: METHYLPREDNISOLONE
     Route: 065
  12. METOPROLOL SUCCINATE [Concomitant]
     Active Substance: METOPROLOL SUCCINATE
     Route: 065
  13. SILDENAFIL [Concomitant]
     Active Substance: SILDENAFIL
     Route: 065
  14. VITAMIN D [Concomitant]
     Active Substance: VITAMIN D NOS
     Route: 065
  15. YONSA [Concomitant]
     Active Substance: ABIRATERONE ACETATE
     Route: 065
  16. LOKELMA [Concomitant]
     Active Substance: SODIUM ZIRCONIUM CYCLOSILICATE
     Route: 065

REACTIONS (4)
  - Vomiting [Unknown]
  - Nausea [Unknown]
  - Hot flush [Unknown]
  - Incorrect dose administered [Unknown]
